FAERS Safety Report 22269790 (Version 1)
Quarter: 2023Q2

REPORT INFORMATION
  Report Type: Report from Study
  Country: MX (occurrence: MX)
  Receive Date: 20230501
  Receipt Date: 20230501
  Transmission Date: 20230722
  Serious: Yes (Hospitalization)
  Sender: FDA-Public Use
  Company Number: MX-ABBVIE-4744438

PATIENT
  Age: 50 Year
  Sex: Female
  Weight: 52 kg

DRUGS (2)
  1. HUMIRA [Suspect]
     Active Substance: ADALIMUMAB
     Indication: Juvenile idiopathic arthritis
     Route: 058
     Dates: start: 20220115, end: 20230326
  2. ETORICOXIB [Concomitant]
     Active Substance: ETORICOXIB
     Indication: Pain

REACTIONS (10)
  - Hepatitis A [Recovering/Resolving]
  - Drug hypersensitivity [Unknown]
  - Pruritus allergic [Unknown]
  - Inflammation [Unknown]
  - Rhinorrhoea [Recovered/Resolved]
  - Hepatitis cholestatic [Recovering/Resolving]
  - Gallbladder disorder [Recovering/Resolving]
  - Pollakiuria [Recovered/Resolved]
  - Feeling abnormal [Unknown]
  - Erythema [Unknown]

NARRATIVE: CASE EVENT DATE: 20230301
